FAERS Safety Report 8979795 (Version 1)
Quarter: 2012Q4

REPORT INFORMATION
  Report Type: 
  Country: US (occurrence: US)
  Receive Date: 20121212
  Receipt Date: 20121212
  Transmission Date: 20130627
  Serious: Yes (Other)
  Sender: FDA-Public Use
  Company Number: US-ASTELLAS-1115390

PATIENT
  Sex: Female

DRUGS (4)
  1. TARCEVA [Suspect]
     Indication: MALIGNANT RESPIRATORY TRACT NEOPLASM
     Route: 065
  2. RADIATION [Concomitant]
  3. DURAGESIC [Concomitant]
     Route: 065
  4. OXYCONTIN [Concomitant]
     Route: 065

REACTIONS (6)
  - Rash [Unknown]
  - Back pain [Recovered/Resolved]
  - Dyspnoea [Unknown]
  - Musculoskeletal pain [Unknown]
  - Chronic obstructive pulmonary disease [Unknown]
  - Metastases to bone [Unknown]
